FAERS Safety Report 21410373 (Version 1)
Quarter: 2022Q4

REPORT INFORMATION
  Report Type: Other
  Country: CN (occurrence: None)
  Receive Date: 20221005
  Receipt Date: 20221005
  Transmission Date: 20230113
  Serious: Yes (Other)
  Sender: FDA-Public Use
  Company Number: CN-ROCHE-3190850

PATIENT

DRUGS (2)
  1. RITUXIMAB [Suspect]
     Active Substance: RITUXIMAB
     Indication: Systemic lupus erythematosus
     Dosage: DISSOLVE IN 5% GLUCOSE INJECTION (AND CONTROL THE DRIPPING SPEED), CONTINUOUS TREATMENT FOR 6 MONTHS
     Route: 041
  2. TACROLIMUS [Suspect]
     Active Substance: TACROLIMUS
     Indication: Systemic lupus erythematosus
     Dosage: AFTER 4 TO 8 WEEKS OF TREATMENT, THE DOSE WAS APPROPRIATELY ADJUSTED ACCORDING TO THE PATIENT^S COND
     Route: 048

REACTIONS (1)
  - Lupus nephritis [Unknown]
